FAERS Safety Report 24747785 (Version 1)
Quarter: 2024Q4

REPORT INFORMATION
  Report Type: Spontaneous
  Country: PT (occurrence: None)
  Receive Date: 20241218
  Receipt Date: 20241218
  Transmission Date: 20250114
  Serious: Yes (Hospitalization, Other)
  Sender: MDD OPERATIONS
  Company Number: PT-MDD US Operations-MDD202412-004621

PATIENT
  Age: 71 Year
  Sex: Female

DRUGS (7)
  1. SAFINAMIDE [Suspect]
     Active Substance: SAFINAMIDE
     Indication: Parkinson^s disease
     Dosage: NOT PROVIDED
  2. CANDESARTAN [Concomitant]
     Active Substance: CANDESARTAN
     Indication: Parkinson^s disease
     Dosage: NOT PROVIDED
  3. ASPIRIN [Concomitant]
     Active Substance: ASPIRIN
     Indication: Parkinson^s disease
     Dosage: NOT PROVIDED
  4. BENSERAZIDE\LEVODOPA [Concomitant]
     Active Substance: BENSERAZIDE\LEVODOPA
     Indication: Parkinson^s disease
     Dosage: NOT PROVIDED
  5. SERTRALINE [Concomitant]
     Active Substance: SERTRALINE HYDROCHLORIDE
     Indication: Parkinson^s disease
     Dosage: NOT PROVIDED
  6. MAGNESIUM [Concomitant]
     Active Substance: MAGNESIUM
     Indication: Parkinson^s disease
     Dosage: NOT PROVIDED
  7. AMITRIPTYLINE [Interacting]
     Active Substance: AMITRIPTYLINE
     Indication: Parkinson^s disease
     Dosage: NOT PROVIDED

REACTIONS (4)
  - Respiratory alkalosis [Recovered/Resolved]
  - Metabolic acidosis [Recovered/Resolved]
  - Drug interaction [Recovered/Resolved]
  - Contraindicated product administered [Unknown]
